FAERS Safety Report 21611062 (Version 1)
Quarter: 2022Q4

REPORT INFORMATION
  Report Type: Report from Study
  Country: US (occurrence: US)
  Receive Date: 20221117
  Receipt Date: 20221117
  Transmission Date: 20230113
  Serious: No
  Sender: FDA-Public Use
  Company Number: US-ABBVIE-4155472

PATIENT
  Sex: Male

DRUGS (2)
  1. HUMIRA [Suspect]
     Active Substance: ADALIMUMAB
     Indication: Ankylosing spondylitis
     Route: 058
  2. Moderna [Concomitant]
     Indication: COVID-19 immunisation
     Route: 030

REACTIONS (4)
  - Carpal tunnel syndrome [Recovering/Resolving]
  - Diabetic neuropathy [Not Recovered/Not Resolved]
  - Nerve compression [Recovering/Resolving]
  - Trigger finger [Not Recovered/Not Resolved]
